FAERS Safety Report 4365700-0 (Version None)
Quarter: 2004Q2

REPORT INFORMATION
  Report Type: 
  Country: None (occurrence: None)
  Receive Date: 20040520
  Receipt Date: 20040510
  Transmission Date: 20050107
  Serious: Yes (Hospitalization)
  Sender: FDA-Public Use
  Company Number: 2004027833

PATIENT
  Sex: Female

DRUGS (2)
  1. ATORVASTATIN (ATORVASTATIN) [Suspect]
     Indication: DYSLIPIDAEMIA
     Dosage: 10 MG DAILY , ORAL
     Route: 048
     Dates: start: 19980401
  2. LEVOTHYROXINE SODIUM [Concomitant]

REACTIONS (6)
  - BLOOD CHOLESTEROL INCREASED [None]
  - FALL [None]
  - HERNIA [None]
  - MENISCUS LESION [None]
  - OVARIAN CYST [None]
  - WEIGHT DECREASED [None]
